FAERS Safety Report 15470151 (Version 2)
Quarter: 2020Q3

REPORT INFORMATION
  Report Type: Report from Study
  Country: US (occurrence: US)
  Receive Date: 20181005
  Receipt Date: 20200821
  Transmission Date: 20201102
  Serious: Yes (Disabling)
  Sender: FDA-Public Use
  Company Number: US-SAKK-2018SA272537AA

PATIENT

DRUGS (3)
  1. ACYCLOVIR [ACICLOVIR] [Concomitant]
     Active Substance: ACYCLOVIR
  2. GABAPENTIN. [Concomitant]
     Active Substance: GABAPENTIN
  3. ALEMTUZUMAB [Suspect]
     Active Substance: ALEMTUZUMAB
     Indication: MULTIPLE SCLEROSIS
     Dosage: 12 MG, QD
     Route: 041
     Dates: start: 20180827, end: 20180831

REACTIONS (3)
  - Fatigue [Not Recovered/Not Resolved]
  - Paraesthesia [Not Recovered/Not Resolved]
  - Gait disturbance [Not Recovered/Not Resolved]

NARRATIVE: CASE EVENT DATE: 20180827
